FAERS Safety Report 6647628-6 (Version None)
Quarter: 2010Q1

REPORT INFORMATION
  Report Type: 
  Country: None (occurrence: None)
  Receive Date: 20100323
  Receipt Date: 20100323
  Transmission Date: 20100710
  Serious: Yes (Hospitalization)
  Sender: FDA-Public Use
  Company Number: None

PATIENT
  Age: 73 Year
  Sex: Female
  Weight: 65.9 kg

DRUGS (8)
  1. EFFIENT [Suspect]
     Indication: PERCUTANEOUS CORONARY INTERVENTION
     Dosage: 10 MG ONCE A DAY PO
     Route: 048
     Dates: start: 20100309, end: 20100311
  2. EFFIENT [Suspect]
     Indication: THROMBOSIS PROPHYLAXIS
     Dosage: 10 MG ONCE A DAY PO
     Route: 048
     Dates: start: 20100309, end: 20100311
  3. ASPIRIN [Suspect]
  4. LEVOTHYROXINE SODIUM [Concomitant]
  5. ZOCOR [Concomitant]
  6. FUROSEMIDE [Concomitant]
  7. COZAAR [Concomitant]
  8. PLAVIX [Suspect]

REACTIONS (3)
  - ANAEMIA [None]
  - HAEMORRHAGE [None]
  - MELAENA [None]
